FAERS Safety Report 5137036-1 (Version None)
Quarter: 2006Q4

REPORT INFORMATION
  Report Type: 
  Country: None (occurrence: None)
  Receive Date: 20061030
  Receipt Date: 20060406
  Transmission Date: 20070319
  Serious: Yes (Death, Life-Threatening)
  Sender: FDA-Public Use
  Company Number: PHBS2006IT05114

PATIENT
  Age: 77 Year
  Sex: Female

DRUGS (11)
  1. ESIDRIX [Suspect]
     Indication: CARDIAC FAILURE
     Dosage: 25 MG/DAY
     Route: 048
     Dates: start: 20060223, end: 20060223
  2. ESIDRIX [Suspect]
     Dosage: 12.5 MG/DAY
     Route: 048
     Dates: start: 20060316, end: 20060316
  3. EUTIROX [Concomitant]
  4. SIGACORA - SLOW RELEASE [Concomitant]
  5. CORDARONE [Concomitant]
  6. PANTOPAN [Concomitant]
  7. LASIX [Concomitant]
  8. LUVION [Concomitant]
  9. COUMADIN [Concomitant]
  10. SINVACOR [Concomitant]
  11. ALLOPURINOL [Concomitant]

REACTIONS (5)
  - ASPIRATION BONE MARROW ABNORMAL [None]
  - BONE MARROW FAILURE [None]
  - BRONCHITIS [None]
  - CARDIAC DISORDER [None]
  - NEUTROPENIA [None]
